FAERS Safety Report 25120130 (Version 1)
Quarter: 2025Q1

REPORT INFORMATION
  Report Type: Spontaneous
  Country: US (occurrence: None)
  Receive Date: 20250325
  Receipt Date: 20250325
  Transmission Date: 20250408
  Serious: No
  Sender: FDA-CTU
  Company Number: None

PATIENT
  Age: 44 Year
  Sex: Female

DRUGS (1)
  1. EMGALITY [Suspect]
     Active Substance: GALCANEZUMAB-GNLM
     Indication: Migraine
     Route: 058
     Dates: start: 20250217, end: 20250312

REACTIONS (3)
  - Dizziness [None]
  - Nonspecific reaction [None]
  - Impaired driving ability [None]

NARRATIVE: CASE EVENT DATE: 20250325
